FAERS Safety Report 7443397-0 (Version None)
Quarter: 2011Q2

REPORT INFORMATION
  Report Type: 
  Country: None (occurrence: None)
  Receive Date: 20110428
  Receipt Date: 20110425
  Transmission Date: 20111010
  Serious: Yes (Other)
  Sender: FDA-Public Use
  Company Number: CA-ABBOTT-11P-028-0721724-00

PATIENT
  Sex: Male
  Weight: 30.872 kg

DRUGS (6)
  1. HUMIRA [Suspect]
     Indication: RHEUMATOID ARTHRITIS
     Route: 058
     Dates: start: 20091029
  2. APO-BISOPROLOL [Concomitant]
     Indication: HEART RATE INCREASED
     Route: 048
  3. METHOTREXATE [Concomitant]
     Indication: RHEUMATOID ARTHRITIS
     Route: 058
     Dates: start: 20010101
  4. HUMIRA [Suspect]
     Dates: start: 20110421
  5. UNKNOWN MEDICATION [Concomitant]
     Indication: PRODUCT USED FOR UNKNOWN INDICATION
  6. RATIO-AMIODIPINE [Concomitant]
     Indication: HYPERTENSION
     Route: 048

REACTIONS (1)
  - RENAL NEOPLASM [None]
